FAERS Safety Report 10488449 (Version 1)
Quarter: 2014Q4

REPORT INFORMATION
  Report Type: Spontaneous
  Country: US (occurrence: None)
  Receive Date: 20141001
  Receipt Date: 20141001
  Transmission Date: 20150528
  Serious: No
  Sender: FDA-Public Use
  Company Number: None

PATIENT
  Age: 58 Year
  Sex: Female
  Weight: 90.72 kg

DRUGS (1)
  1. BUPROPION SR [Suspect]
     Active Substance: BUPROPION
     Indication: DEPRESSION
     Dosage: 1/TABLET ONCE DAILY TAKEN BY MOUTH
     Route: 048
     Dates: start: 20140906, end: 20140930

REACTIONS (5)
  - Sensory disturbance [None]
  - Nervousness [None]
  - Palpitations [None]
  - Stress [None]
  - Tremor [None]

NARRATIVE: CASE EVENT DATE: 20140929
